FAERS Safety Report 17823409 (Version 1)
Quarter: 2020Q2

REPORT INFORMATION
  Report Type: Spontaneous
  Country: US (occurrence: US)
  Receive Date: 20200524
  Receipt Date: 20200524
  Transmission Date: 20200714
  Serious: Yes (Life-Threatening)
  Sender: FDA-Public Use
  Company Number: None

PATIENT
  Age: 10 Year
  Sex: Female
  Weight: 51.3 kg

DRUGS (6)
  1. ZYRTEC [Concomitant]
     Active Substance: CETIRIZINE HYDROCHLORIDE
  2. FAMOTODINE [Concomitant]
  3. VITAMIN D3 [Concomitant]
     Active Substance: CHOLECALCIFEROL
  4. WYLEXA [Concomitant]
  5. AZELESTINE [Concomitant]
     Active Substance: AZELASTINE
  6. MONTELUKAST [Suspect]
     Active Substance: MONTELUKAST SODIUM
     Indication: ASTHMA
     Dosage: ?
     Route: 048

REACTIONS (8)
  - Dizziness [None]
  - Headache [None]
  - Nightmare [None]
  - Abdominal pain upper [None]
  - Hallucination [None]
  - Gastrooesophageal reflux disease [None]
  - Suicidal ideation [None]
  - Obsessive-compulsive symptom [None]
